FAERS Safety Report 16874670 (Version 2)
Quarter: 2019Q4

REPORT INFORMATION
  Report Type: Spontaneous
  Country: US (occurrence: US)
  Receive Date: 20191001
  Receipt Date: 20191009
  Transmission Date: 20200122
  Serious: Yes (Hospitalization)
  Sender: FDA-Public Use
  Company Number: US-TEVA-2019-US-1115561

PATIENT
  Age: 10 Year
  Sex: Female

DRUGS (3)
  1. HYDROXYUREA. [Suspect]
     Active Substance: HYDROXYUREA
     Indication: SICKLE CELL DISEASE
     Route: 065
  2. AMPHOTERICIN B. [Suspect]
     Active Substance: AMPHOTERICIN B
     Indication: EVIDENCE BASED TREATMENT
     Route: 065
  3. CEFTRIAXONE. [Concomitant]
     Active Substance: CEFTRIAXONE
     Indication: EVIDENCE BASED TREATMENT
     Route: 065

REACTIONS (8)
  - Hepatosplenomegaly [Unknown]
  - Mycobacterium avium complex infection [Recovering/Resolving]
  - Granuloma [Unknown]
  - Interferon gamma decreased [Unknown]
  - Obstructive airways disorder [Recovering/Resolving]
  - Acute kidney injury [Unknown]
  - Pulmonary mass [Unknown]
  - Hepatitis [Unknown]
